FAERS Safety Report 22331501 (Version 1)
Quarter: 2023Q2

REPORT INFORMATION
  Report Type: Report from Study
  Country: US (occurrence: US)
  Receive Date: 20230517
  Receipt Date: 20230517
  Transmission Date: 20230721
  Serious: Yes (Hospitalization)
  Sender: FDA-Public Use
  Company Number: US-TAKEDA-2022TUS044220

PATIENT
  Age: 15 Year
  Sex: Male

DRUGS (7)
  1. IDURSULFASE [Suspect]
     Active Substance: IDURSULFASE
     Indication: Mucopolysaccharidosis II
     Dosage: 40 MILLIGRAM, 1/WEEK
     Route: 042
  2. IDURSULFASE [Suspect]
     Active Substance: IDURSULFASE
     Dosage: 40 MILLIGRAM, 1/WEEK
     Route: 042
     Dates: start: 202202
  3. IDURSULFASE [Suspect]
     Active Substance: IDURSULFASE
     Dosage: 36 MILLIGRAM, 1/WEEK
     Route: 042
     Dates: start: 20220215
  4. IDURSULFASE [Suspect]
     Active Substance: IDURSULFASE
     Dosage: 36 MILLIGRAM, 1/WEEK
     Route: 042
     Dates: start: 20220217
  5. IDURSULFASE [Suspect]
     Active Substance: IDURSULFASE
     Dosage: 40 MILLIGRAM, 1/WEEK
     Route: 042
     Dates: start: 202208
  6. IDURSULFASE [Suspect]
     Active Substance: IDURSULFASE
     Dosage: 40 MILLIGRAM, 1/WEEK
     Route: 042
     Dates: start: 202210
  7. IDURSULFASE [Suspect]
     Active Substance: IDURSULFASE
     Dosage: 40 MILLIGRAM, 1/WEEK
     Route: 042

REACTIONS (6)
  - Poor venous access [Unknown]
  - Illness [Unknown]
  - Device use issue [Unknown]
  - Product availability issue [Unknown]
  - Product dose omission issue [Unknown]
  - Inappropriate schedule of product administration [Unknown]

NARRATIVE: CASE EVENT DATE: 20220628
